FAERS Safety Report 7945833-X (Version None)
Quarter: 2011Q4

REPORT INFORMATION
  Report Type: 
  Country: None (occurrence: None)
  Receive Date: 20111129
  Receipt Date: 20111116
  Transmission Date: 20120403
  Serious: Yes (Other)
  Sender: FDA-Public Use
  Company Number: PHFR2011GB006657

PATIENT
  Age: 24 Year
  Sex: Female

DRUGS (1)
  1. VOLTAREN [Suspect]

REACTIONS (4)
  - HYPOAESTHESIA [None]
  - PARAESTHESIA [None]
  - IMPAIRED HEALING [None]
  - NERVE INJURY [None]
